FAERS Safety Report 5315815-5 (Version None)
Quarter: 2007Q2

REPORT INFORMATION
  Report Type: 
  Country: None (occurrence: None)
  Receive Date: 20070503
  Receipt Date: 20070425
  Transmission Date: 20071010
  Serious: Yes (Hospitalization)
  Sender: FDA-Public Use
  Company Number: CN-GLAXOSMITHKLINE-B0468469A

PATIENT
  Age: 27 Year
  Sex: Male

DRUGS (1)
  1. MUPIROCIN [Suspect]
     Indication: DRUG USE FOR UNKNOWN INDICATION
     Route: 061
     Dates: start: 20070421, end: 20070422

REACTIONS (1)
  - SKIN INFLAMMATION [None]
